FAERS Safety Report 12457340 (Version 2)
Quarter: 2016Q2

REPORT INFORMATION
  Report Type: Spontaneous
  Country: US (occurrence: US)
  Receive Date: 20160610
  Receipt Date: 20160614
  Transmission Date: 20160815
  Serious: Yes (Disabling, Other)
  Sender: FDA-Public Use
  Company Number: US-TEVA-665943USA

PATIENT
  Sex: Female

DRUGS (1)
  1. VENLAFAXINE [Suspect]
     Active Substance: VENLAFAXINE HYDROCHLORIDE
     Indication: MAJOR DEPRESSION
     Dates: start: 20160501

REACTIONS (7)
  - Thinking abnormal [Recovering/Resolving]
  - Abasia [Recovering/Resolving]
  - Product substitution issue [Unknown]
  - Drug withdrawal syndrome [Recovering/Resolving]
  - Adverse event [Recovering/Resolving]
  - Drug ineffective [Unknown]
  - Activities of daily living impaired [Recovering/Resolving]

NARRATIVE: CASE EVENT DATE: 20160508
